FAERS Safety Report 6718198-9 (Version None)
Quarter: 2010Q2

REPORT INFORMATION
  Report Type: 
  Country: None (occurrence: None)
  Receive Date: 20100510
  Receipt Date: 20100429
  Transmission Date: 20101027
  Serious: Yes (Other)
  Sender: FDA-Public Use
  Company Number: US-PFIZER INC-2010044745

PATIENT
  Sex: Male
  Weight: 80.6 kg

DRUGS (11)
  1. SUNITINIB MALATE [Suspect]
     Indication: GLIOBLASTOMA MULTIFORME
     Dosage: 37.5 MG, 1X/DAY
     Dates: start: 20100224, end: 20100405
  2. ADVAIR DISKUS 100/50 [Concomitant]
     Dosage: 2 PUFFS, 2X/DAY
  3. MONTELUKAST SODIUM [Concomitant]
     Dosage: UNK
  4. PREVACID [Concomitant]
     Dosage: UNK
  5. LAMICTAL [Concomitant]
     Dosage: 200 MG, 2X/DAY
  6. DILANTIN [Concomitant]
     Dosage: 300 MG, 1X/DAY
  7. BACTRIM [Concomitant]
  8. DECADRON [Concomitant]
     Dosage: 4 MG, 3X/DAY
  9. LISINOPRIL [Concomitant]
     Dosage: 10 MG, 1X/DAY
  10. KEPPRA [Concomitant]
     Dosage: UNK
  11. LAMOTRIGINE [Concomitant]
     Dosage: UNK

REACTIONS (3)
  - ATAXIA [None]
  - HYPERTENSION [None]
  - VISION BLURRED [None]
